FAERS Safety Report 22028605 (Version 1)
Quarter: 2023Q1

REPORT INFORMATION
  Report Type: Spontaneous
  Country: ID (occurrence: ID)
  Receive Date: 20230223
  Receipt Date: 20230223
  Transmission Date: 20230418
  Serious: Yes (Death)
  Sender: FDA-Public Use
  Company Number: ID-PFIZER INC-PV202300032916

PATIENT
  Age: 56 Year
  Sex: Male

DRUGS (12)
  1. METHYLPREDNISOLONE SODIUM SUCCINATE [Suspect]
     Active Substance: METHYLPREDNISOLONE SODIUM SUCCINATE
     Indication: Lepromatous leprosy
     Dosage: 48 MG
     Route: 042
  2. METHYLPREDNISOLONE SODIUM SUCCINATE [Suspect]
     Active Substance: METHYLPREDNISOLONE SODIUM SUCCINATE
     Indication: Sepsis
  3. MEROPENEM [Suspect]
     Active Substance: MEROPENEM
     Indication: Lepromatous leprosy
     Dosage: 3 X 1 GR
     Route: 042
  4. MEROPENEM [Suspect]
     Active Substance: MEROPENEM
     Indication: Sepsis
  5. RIFAMPIN [Suspect]
     Active Substance: RIFAMPIN
     Indication: Lepromatous leprosy
     Dosage: 600 MG, MONTHLY
  6. DAPSONE [Suspect]
     Active Substance: DAPSONE
     Indication: Lepromatous leprosy
     Dosage: 100 MG, DAILY
  7. CLOFAZIMINE [Suspect]
     Active Substance: CLOFAZIMINE
     Indication: Lepromatous leprosy
     Dosage: 300 MG, MONTHLY
  8. CLOFAZIMINE [Suspect]
     Active Substance: CLOFAZIMINE
     Dosage: 50 MG, DAILY
  9. INSULIN NOS [Concomitant]
     Active Substance: INSULIN NOS
     Indication: Diabetes mellitus
     Dosage: 4 UNIT/HOUR
  10. HEPARIN [Concomitant]
     Active Substance: HEPARIN SODIUM
     Indication: Disseminated intravascular coagulation
     Dosage: 20000 UNIT/DAY
  11. METFORMIN [Concomitant]
     Active Substance: METFORMIN HYDROCHLORIDE
     Indication: Diabetes mellitus
     Dosage: 1 X 500 MG SINCE SIX YEARS AGO
  12. FUSIDIC ACID [Concomitant]
     Active Substance: FUSIDIC ACID
     Indication: Skin erosion
     Dosage: UNK

REACTIONS (2)
  - Drug ineffective [Fatal]
  - Off label use [Unknown]
